FAERS Safety Report 9981736 (Version 1)
Quarter: 2014Q1

REPORT INFORMATION
  Report Type: Report from Study
  Country: US (occurrence: US)
  Receive Date: 20140307
  Receipt Date: 20140307
  Transmission Date: 20141002
  Serious: No
  Sender: FDA-Public Use
  Company Number: US-ABBVIE-13P-163-1177575-00

PATIENT
  Age: 44 Year
  Sex: Female
  Weight: 83.99 kg

DRUGS (8)
  1. HUMIRA [Suspect]
     Indication: RHEUMATOID ARTHRITIS
     Dates: start: 2010, end: 2010
  2. HUMIRA [Suspect]
     Indication: CROHN^S DISEASE
     Dates: start: 2010, end: 2010
  3. HUMIRA [Suspect]
     Dates: start: 2010
  4. SULFASALAZINE [Concomitant]
     Indication: CROHN^S DISEASE
  5. SULFASALAZINE [Concomitant]
     Indication: RHEUMATOID ARTHRITIS
  6. AZATHIOPRINE [Concomitant]
     Indication: CROHN^S DISEASE
  7. AZATHIOPRINE [Concomitant]
     Indication: RHEUMATOID ARTHRITIS
  8. PREVACID [Concomitant]
     Indication: CROHN^S DISEASE

REACTIONS (5)
  - Red blood cell sedimentation rate increased [Not Recovered/Not Resolved]
  - Abdominal pain upper [Not Recovered/Not Resolved]
  - Bacterial infection [Recovered/Resolved]
  - Diarrhoea [Recovered/Resolved]
  - Clostridium difficile infection [Recovered/Resolved]
